FAERS Safety Report 8993148 (Version 2)
Quarter: 2013Q1

REPORT INFORMATION
  Report Type: Spontaneous
  Country: US (occurrence: US)
  Receive Date: 20130102
  Receipt Date: 20130312
  Transmission Date: 20140127
  Serious: Yes (Death, Other)
  Sender: FDA-Public Use
  Company Number: PHHY2012US121346

PATIENT
  Age: 38 Year
  Sex: Female

DRUGS (5)
  1. VALPROIC ACID [Suspect]
     Dosage: 500 MG, DAILY
  2. VALPROIC ACID [Suspect]
     Dosage: 500 MG, BID
  3. CYCLOBENZAPRINE [Concomitant]
     Indication: NECK PAIN
     Dosage: 10 MG, TID
  4. SERTRALINE [Concomitant]
     Dosage: 100 MG, QD
  5. PERPHENAZINE [Concomitant]
     Dosage: 4MG QAM AND 6MG QPM

REACTIONS (17)
  - Hyperammonaemic encephalopathy [Fatal]
  - Brain oedema [Fatal]
  - Hyperammonaemia [Fatal]
  - Depressed level of consciousness [Fatal]
  - Unresponsive to stimuli [Fatal]
  - Intracranial pressure increased [Fatal]
  - Confusional state [Fatal]
  - Somnolence [Fatal]
  - Agitation [Fatal]
  - Abnormal behaviour [Fatal]
  - Tachycardia [Fatal]
  - Muscle rigidity [Fatal]
  - Joint stiffness [Fatal]
  - Mydriasis [Fatal]
  - Hyperreflexia [Fatal]
  - Clonus [Fatal]
  - Pneumonia aspiration [Unknown]
